FAERS Safety Report 13503529 (Version 2)
Quarter: 2017Q3

REPORT INFORMATION
  Report Type: Spontaneous
  Country: DE (occurrence: DE)
  Receive Date: 20170502
  Receipt Date: 20170727
  Transmission Date: 20171127
  Serious: Yes (Disabling, Other)
  Sender: FDA-Public Use
  Company Number: DE-PFIZER INC-2017184789

PATIENT
  Age: 71 Year
  Sex: Female
  Weight: 174 kg

DRUGS (1)
  1. AZULFIDINE [Suspect]
     Active Substance: SULFASALAZINE
     Indication: COLITIS ULCERATIVE
     Dosage: UNK

REACTIONS (2)
  - Cerebrovascular accident [Unknown]
  - Dysphagia [Unknown]
